FAERS Safety Report 5233575-3 (Version None)
Quarter: 2007Q1

REPORT INFORMATION
  Report Type: 
  Country: None (occurrence: None)
  Receive Date: 20070208
  Receipt Date: 20070130
  Transmission Date: 20070707
  Serious: Yes (Hospitalization)
  Sender: FDA-Public Use
  Company Number: US-AMGEN-US209075

PATIENT
  Age: 66 Year
  Sex: Female
  Weight: 52 kg

DRUGS (9)
  1. SENSIPAR [Suspect]
     Indication: HYPERPARATHYROIDISM SECONDARY
     Dates: start: 20051201
  2. LISINOPRIL [Concomitant]
  3. TELMISARTAN [Concomitant]
  4. AMIODARONE HCL [Concomitant]
  5. SIMVASTATIN [Concomitant]
  6. LANSOPRAZOLE [Concomitant]
  7. FLUTICASONE PROPIONATE [Concomitant]
  8. LORATADINE [Concomitant]
  9. PARICALCITOL [Concomitant]

REACTIONS (1)
  - HUNGRY BONE SYNDROME [None]
